FAERS Safety Report 10298015 (Version 1)
Quarter: 2014Q3

REPORT INFORMATION
  Report Type: Spontaneous
  Country: US (occurrence: US)
  Receive Date: 20140711
  Receipt Date: 20140711
  Transmission Date: 20150326
  Serious: No
  Sender: FDA-Public Use
  Company Number: US-GLAXOSMITHKLINE-A1028827A

PATIENT
  Age: 64 Year
  Sex: Female

DRUGS (2)
  1. PROAIR HFA [Concomitant]
     Active Substance: ALBUTEROL SULFATE
  2. FLOVENT [Suspect]
     Active Substance: FLUTICASONE PROPIONATE
     Indication: DYSPNOEA
     Dosage: 1SPR SINGLE DOSE
     Route: 055
     Dates: start: 20130622, end: 20130622

REACTIONS (1)
  - Glossodynia [Recovering/Resolving]

NARRATIVE: CASE EVENT DATE: 20130622
